FAERS Safety Report 13421953 (Version 2)
Quarter: 2017Q3

REPORT INFORMATION
  Report Type: Spontaneous
  Country: US (occurrence: US)
  Receive Date: 20170410
  Receipt Date: 20170829
  Transmission Date: 20171127
  Serious: No
  Sender: FDA-Public Use
  Company Number: US-PFIZER INC-2017155654

PATIENT
  Age: 80 Year
  Sex: Female
  Weight: 57 kg

DRUGS (3)
  1. IBRANCE [Suspect]
     Active Substance: PALBOCICLIB
     Indication: BREAST CANCER METASTATIC
     Dosage: 75 MG, CYCLIC
     Dates: start: 201610
  2. IBRANCE [Suspect]
     Active Substance: PALBOCICLIB
     Dosage: 75 MG, CYCLIC (DAILY, ON 14 DAYS AND OFF 14 DAYS)
     Dates: start: 201610
  3. FEMARA [Concomitant]
     Active Substance: LETROZOLE
     Dosage: UNK
     Dates: start: 201610

REACTIONS (3)
  - Malaise [Recovered/Resolved]
  - Neoplasm progression [Unknown]
  - Dehydration [Unknown]
